FAERS Safety Report 14529512 (Version 1)
Quarter: 2018Q1

REPORT INFORMATION
  Report Type: Spontaneous
  Country: IN (occurrence: IN)
  Receive Date: 20180214
  Receipt Date: 20180214
  Transmission Date: 20180509
  Serious: Yes (Hospitalization, Other)
  Sender: FDA-Public Use
  Company Number: IN-BAYER-2018-028687

PATIENT
  Age: 32 Year
  Sex: Female

DRUGS (1)
  1. CIPROFLOXACIN. [Suspect]
     Active Substance: CIPROFLOXACIN
     Indication: INFECTION
     Dosage: 500MG/100ML
     Route: 042

REACTIONS (3)
  - Maternal exposure during pregnancy [None]
  - Foetal death [None]
  - Anaphylactic reaction [Recovered/Resolved]
